FAERS Safety Report 8670374 (Version 2)
Quarter: 2015Q2

REPORT INFORMATION
  Report Type: Report from Study
  Country: US (occurrence: US)
  Receive Date: 20120718
  Receipt Date: 20150624
  Transmission Date: 20150821
  Serious: Yes (Death)
  Sender: FDA-Public Use
  Company Number: US-ROCHE-1087525

PATIENT
  Sex: Female

DRUGS (7)
  1. LUCENTIS [Suspect]
     Active Substance: RANIBIZUMAB
     Indication: RETINAL VEIN OCCLUSION
     Route: 065
  2. XIBROM [Concomitant]
     Active Substance: BROMFENAC SODIUM
  3. GENTAMYCIN [Concomitant]
     Active Substance: GENTAMICIN
     Route: 065
  4. PROPARACAINE [Concomitant]
     Active Substance: PROPARACAINE
     Route: 065
  5. TOBRADEX [Concomitant]
     Active Substance: DEXAMETHASONE\TOBRAMYCIN
  6. BETADINE [Concomitant]
     Active Substance: POVIDONE-IODINE
     Route: 065
  7. XYLOCAINE [Concomitant]
     Active Substance: LIDOCAINE HYDROCHLORIDE
     Route: 004

REACTIONS (1)
  - Death [Fatal]
